FAERS Safety Report 10077920 (Version 2)
Quarter: 2014Q2

REPORT INFORMATION
  Report Type: Spontaneous
  Country: FI (occurrence: FI)
  Receive Date: 20140415
  Receipt Date: 20140502
  Transmission Date: 20141212
  Serious: Yes (Hospitalization, Other)
  Sender: FDA-Public Use
  Company Number: FI-ROCHE-1382751

PATIENT
  Sex: Male

DRUGS (5)
  1. MABTHERA [Suspect]
     Indication: GLOMERULONEPHRITIS MINIMAL LESION
     Route: 042
     Dates: start: 20120328
  2. MABTHERA [Suspect]
     Route: 042
     Dates: start: 20130628
  3. MEDROL [Concomitant]
     Route: 065
  4. LINATIL [Concomitant]
     Route: 065
  5. MAREVAN [Concomitant]
     Indication: PULMONARY EMBOLISM
     Route: 065

REACTIONS (6)
  - Myocardial infarction [Recovered/Resolved]
  - Transient ischaemic attack [Recovered/Resolved]
  - Coronary artery thrombosis [Recovered/Resolved]
  - Electrocardiogram T wave inversion [Recovered/Resolved]
  - Troponin increased [Recovered/Resolved]
  - Disease recurrence [Recovered/Resolved]
